FAERS Safety Report 19440015 (Version 1)
Quarter: 2021Q2

REPORT INFORMATION
  Report Type: Report from Study
  Country: IN (occurrence: IN)
  Receive Date: 20210620
  Receipt Date: 20210620
  Transmission Date: 20210717
  Serious: Yes (Death, Other)
  Sender: FDA-Public Use
  Company Number: NVSC2021IN138426

PATIENT
  Age: 81 Year
  Sex: Female

DRUGS (1)
  1. VYMADA [Suspect]
     Active Substance: SACUBITRIL\VALSARTAN
     Indication: CARDIAC FAILURE CHRONIC
     Dosage: 100 MG, BID
     Route: 048
     Dates: start: 20200203

REACTIONS (2)
  - Pyrexia [Fatal]
  - Circulatory collapse [Unknown]
